FAERS Safety Report 16539425 (Version 1)
Quarter: 2019Q3

REPORT INFORMATION
  Report Type: Spontaneous
  Country: US (occurrence: US)
  Receive Date: 20190524
  Receipt Date: 20190524
  Transmission Date: 20191004
  Serious: No
  Sender: FDA-Public Use
  Company Number: None

PATIENT
  Age: 78 Year
  Sex: Male

DRUGS (9)
  1. CARVEDILOL. [Concomitant]
     Active Substance: CARVEDILOL
  2. AMIODARONE [Concomitant]
     Active Substance: AMIODARONE
  3. SIMVASTATIN. [Concomitant]
     Active Substance: SIMVASTATIN
  4. ZYTIGA [Suspect]
     Active Substance: ABIRATERONE ACETATE
     Indication: PROSTATE CANCER
     Route: 048
  5. FUROSEMIDE. [Concomitant]
     Active Substance: FUROSEMIDE
  6. ISOSORBIDE. [Concomitant]
     Active Substance: ISOSORBIDE
  7. XARELTO [Concomitant]
     Active Substance: RIVAROXABAN
  8. TAMSULOSIN [Concomitant]
     Active Substance: TAMSULOSIN
  9. LOSARTAN. [Concomitant]
     Active Substance: LOSARTAN

REACTIONS (2)
  - Flatulence [None]
  - Diarrhoea [None]
